FAERS Safety Report 8068753-1 (Version None)
Quarter: 2012Q1

REPORT INFORMATION
  Report Type: 
  Country: None (occurrence: None)
  Receive Date: 20120124
  Receipt Date: 20111122
  Transmission Date: 20120608
  Serious: No
  Sender: FDA-Public Use
  Company Number: US-AMGEN-USASP2011061962

PATIENT
  Sex: Female

DRUGS (1)
  1. PROLIA [Suspect]
     Indication: PRODUCT USED FOR UNKNOWN INDICATION
     Dosage: 60 MG, Q6MO
     Dates: start: 20101001

REACTIONS (9)
  - THROAT IRRITATION [None]
  - GASTROOESOPHAGEAL REFLUX DISEASE [None]
  - TOOTH INFECTION [None]
  - LYMPHADENOPATHY [None]
  - HEADACHE [None]
  - INFLUENZA LIKE ILLNESS [None]
  - DYSPEPSIA [None]
  - OROPHARYNGEAL PAIN [None]
  - FATIGUE [None]
